FAERS Safety Report 16781530 (Version 2)
Quarter: 2019Q4

REPORT INFORMATION
  Report Type: Spontaneous
  Country: US (occurrence: US)
  Receive Date: 20190906
  Receipt Date: 20191030
  Transmission Date: 20200122
  Serious: Yes (Death, Hospitalization, Other)
  Sender: FDA-Public Use
  Company Number: US-PFIZER INC-2019385747

PATIENT
  Age: 85 Year
  Sex: Male
  Weight: 83.9 kg

DRUGS (10)
  1. TYLENOL [Concomitant]
     Active Substance: ACETAMINOPHEN
     Indication: PAIN
     Dosage: 500 MG, 2X/DAY(1 IN AM,1 IN PM, 500MG)
  2. COLAZAL [Concomitant]
     Active Substance: BALSALAZIDE DISODIUM
     Dosage: 750 MG, 2X/DAY
  3. CYMBALTA [Suspect]
     Active Substance: DULOXETINE HYDROCHLORIDE
     Dosage: 30 MG, 1X/DAY(30 MG 1 IN AM)
  4. LYRICA [Suspect]
     Active Substance: PREGABALIN
     Indication: PAIN IN EXTREMITY
     Dosage: 150 MG, DAILY (50MG 1 IN AM, 2 IN PM)
     Dates: start: 2018
  5. COQ10 COMPLEX [Concomitant]
     Indication: CARDIAC DISORDER
     Dosage: 200 MG, 1X/DAY
  6. VITAMIN B12 [Concomitant]
     Active Substance: CYANOCOBALAMIN
     Dosage: 5000 UG, 1X/DAY
  7. FUROSEMIDE. [Suspect]
     Active Substance: FUROSEMIDE
     Dosage: 40 MG, UNK (1 1/2 DAILY)
  8. LYRICA [Suspect]
     Active Substance: PREGABALIN
     Indication: NERVE INJURY
  9. AMIODARONE [Suspect]
     Active Substance: AMIODARONE
     Dosage: 200 MG, 1X/DAY
  10. DULOXETINE. [Suspect]
     Active Substance: DULOXETINE
     Dosage: 30 MG, 1X/DAY(30 MG 1 IN AM)

REACTIONS (5)
  - Ulcer haemorrhage [Unknown]
  - Cardiac failure [Fatal]
  - Dyspnoea [Not Recovered/Not Resolved]
  - Haematemesis [Unknown]
  - Pneumonia [Unknown]
